FAERS Safety Report 20704246 (Version 1)
Quarter: 2022Q2

REPORT INFORMATION
  Report Type: Spontaneous
  Country: RU (occurrence: None)
  Receive Date: 20220413
  Receipt Date: 20220413
  Transmission Date: 20220721
  Serious: Yes (Death)
  Sender: FDA-Public Use
  Company Number: RU-ROCHE-3070081

PATIENT
  Sex: Female

DRUGS (1)
  1. ZELBORAF [Suspect]
     Active Substance: VEMURAFENIB
     Indication: Breast cancer
     Route: 065

REACTIONS (3)
  - Death [Fatal]
  - Disease progression [Unknown]
  - Drug ineffective [Unknown]
